FAERS Safety Report 17431307 (Version 1)
Quarter: 2020Q1

REPORT INFORMATION
  Report Type: Report from Study
  Country: GB (occurrence: GB)
  Receive Date: 20200218
  Receipt Date: 20200218
  Transmission Date: 20200409
  Serious: Yes (Life-Threatening)
  Sender: FDA-Public Use
  Company Number: GB-AMGEN-GBRNI2019034306

PATIENT
  Age: 20 Year
  Sex: Female
  Weight: 74.8 kg

DRUGS (34)
  1. MOVICOL [Concomitant]
     Active Substance: POLYETHYLENE GLYCOL 3350\POTASSIUM CHLORIDE\SODIUM BICARBONATE\SODIUM CHLORIDE
     Dosage: 2 UNK
     Dates: start: 20181104, end: 20190122
  2. RASBURICASE [Concomitant]
     Active Substance: RASBURICASE
     Dosage: 3 MILLIGRAM
     Dates: start: 20181108, end: 20181110
  3. MORPHINE SULFATE. [Concomitant]
     Active Substance: MORPHINE SULFATE
     Dosage: 10-50 MILLIGRAM
     Dates: start: 20181106
  4. ACICLOVIR [Concomitant]
     Active Substance: ACYCLOVIR
     Dosage: 400 MILLIGRAM
     Dates: start: 20181108, end: 20181207
  5. TRIMETHOPRIM. [Concomitant]
     Active Substance: TRIMETHOPRIM
     Dosage: 80 MILLIGRAM
     Dates: start: 20181108, end: 20190125
  6. AMBISOME [Concomitant]
     Active Substance: AMPHOTERICIN B
     Dosage: 50 MILLIGRAM
     Dates: start: 20181109, end: 20181109
  7. NORETHISTERONE [Concomitant]
     Active Substance: NORETHINDRONE
     Dosage: 5 MILLIGRAM
     Dates: start: 20181109
  8. SENNOSIDE [Concomitant]
     Active Substance: SENNOSIDES
     Dosage: 15 MILLIGRAM
     Dates: start: 20181103
  9. OMEPRAZOLE. [Concomitant]
     Active Substance: OMEPRAZOLE
     Dosage: 20 MILLIGRAM
     Dates: start: 20181108, end: 20190111
  10. TEICOPLANIN [Concomitant]
     Active Substance: TEICOPLANIN
     Dosage: 900 MILLIGRAM
     Dates: start: 20181108, end: 20181127
  11. FOLIC ACID. [Concomitant]
     Active Substance: FOLIC ACID
     Dosage: 5 MILLIGRAM
     Dates: start: 2018, end: 20181107
  12. ZOPICLONE [Concomitant]
     Active Substance: ZOPICLONE
     Dosage: 3.75 MILLIGRAM
     Dates: start: 20181102, end: 20181207
  13. CITALOPRAM [Concomitant]
     Active Substance: CITALOPRAM HYDROBROMIDE
     Dosage: 10 MILLIGRAM
     Dates: start: 2018, end: 20181109
  14. AZTREONAM. [Concomitant]
     Active Substance: AZTREONAM
     Dosage: 1 GRAM
     Dates: start: 20181109, end: 20181113
  15. DEXAMETHASONE. [Concomitant]
     Active Substance: DEXAMETHASONE
     Dosage: 20 MILLIGRAM, 1 GTT,(0.9 %)
     Dates: start: 20181108, end: 20181206
  16. HYDROXOCOBALAMIN [Concomitant]
     Active Substance: HYDROXOCOBALAMIN
     Dosage: 1 MILLIGRAM
     Dates: start: 20181108, end: 20181113
  17. ITRACONAZOLE. [Concomitant]
     Active Substance: ITRACONAZOLE
     Dosage: 190 MILLIGRAM
     Dates: start: 20181108, end: 20181109
  18. LINEZOLID. [Concomitant]
     Active Substance: LINEZOLID
     Dosage: 600 MILLIGRAM
     Dates: start: 20181107, end: 20181108
  19. ALLOPURINOL. [Concomitant]
     Active Substance: ALLOPURINOL
     Dosage: 300 MILLIGRAM
     Dates: start: 20181111
  20. MEROPENEM. [Concomitant]
     Active Substance: MEROPENEM
     Dosage: 1 GRAM
     Dates: start: 20181104, end: 20181129
  21. SULFAMETHOXAZOLE [Concomitant]
     Active Substance: SULFAMETHOXAZOLE
     Dosage: 400 MILLIGRAM
     Dates: start: 20181108, end: 20190125
  22. PHOSPHATE SANDOZ [Concomitant]
     Active Substance: SODIUM PHOSPHATE, MONOBASIC, ANHYDROUS
     Dosage: 2 UNK
     Dates: start: 20181109, end: 20181110
  23. PIPERACILLIN. [Concomitant]
     Active Substance: PIPERACILLIN SODIUM
     Indication: NEUTROPENIC SEPSIS
     Dosage: 4 GRAM
     Dates: start: 20181103, end: 20181126
  24. TINZAPARIN [Concomitant]
     Active Substance: TINZAPARIN
     Dosage: 4500 UNK
     Dates: start: 20181102, end: 20190124
  25. CIPROFLOXACIN. [Concomitant]
     Active Substance: CIPROFLOXACIN
     Dosage: 750 MILLIGRAM
     Dates: start: 20181107, end: 20181108
  26. CODEINE [Concomitant]
     Active Substance: CODEINE
     Dosage: 30 MILLIGRAM
     Dates: start: 2018, end: 20181106
  27. CHLORHEXIDINE [Concomitant]
     Active Substance: CHLORHEXIDINE
     Dosage: 1 UNK
     Dates: start: 20181108, end: 20181207
  28. MAGNESIUM OXIDE. [Concomitant]
     Active Substance: MAGNESIUM OXIDE
     Dosage: 400 MILLIGRAM
     Dates: start: 20181103, end: 20181204
  29. PARACETAMOL [Concomitant]
     Active Substance: ACETAMINOPHEN
     Dosage: 1 GRAM
     Dates: start: 20181103, end: 20181111
  30. TAZOBACTAM [Concomitant]
     Active Substance: TAZOBACTAM
     Indication: NEUTROPENIC SEPSIS
     Dosage: 500 MILLIGRAM
     Dates: start: 20181103, end: 20181126
  31. LAMIVUDINE. [Concomitant]
     Active Substance: LAMIVUDINE
     Dosage: 100 MILLIGRAM
     Dates: start: 20181113, end: 20181207
  32. BLINATUMOMAB [Suspect]
     Active Substance: BLINATUMOMAB
     Indication: ACUTE LYMPHOCYTIC LEUKAEMIA
     Dosage: 28 MICROGRAM, QD
     Route: 042
     Dates: start: 20181109
  33. CHOLECALCIFEROL [Concomitant]
     Active Substance: CHOLECALCIFEROL
     Dosage: 40000 UNK
     Dates: start: 20181102
  34. DOCUSATE [Concomitant]
     Active Substance: DOCUSATE
     Dosage: 100 MILLIGRAM
     Dates: start: 20181103, end: 20190125

REACTIONS (1)
  - Neutropenic sepsis [Recovered/Resolved]

NARRATIVE: CASE EVENT DATE: 20181117
